FAERS Safety Report 6667945-3 (Version None)
Quarter: 2010Q2

REPORT INFORMATION
  Report Type: 
  Country: None (occurrence: None)
  Receive Date: 20100401
  Receipt Date: 20100308
  Transmission Date: 20101027
  Serious: Yes (Other)
  Sender: FDA-Public Use
  Company Number: AUR--APL-2010-00733

PATIENT
  Age: 81 Year
  Sex: Male

DRUGS (16)
  1. MIRTAZAPINE [Suspect]
     Indication: DEPRESSION
     Dosage: 15MG, DAILY, ORAL
     Route: 048
     Dates: start: 20100201, end: 20100215
  2. ASPIRIN [Concomitant]
  3. ATENOLOL [Concomitant]
  4. BRINZOLAMIDE [Concomitant]
  5. FESOFENADINE [Concomitant]
  6. TIMOLOL [Concomitant]
  7. FUROSEMIDE [Concomitant]
  8. GAVISCON [Concomitant]
  9. LATANOPROST [Concomitant]
  10. LEVOTHYROXINE SODIUM [Concomitant]
  11. LOSARTAN POTASSIUM [Concomitant]
  12. OMEPRAZOLE [Concomitant]
  13. PILOCARPINE HYDROCHLORIDE [Concomitant]
  14. SENNA [Concomitant]
  15. SPIRONOLACTONE [Concomitant]
  16. PARACETAMOL [Concomitant]

REACTIONS (2)
  - DYSPNOEA [None]
  - GENERALISED OEDEMA [None]
